FAERS Safety Report 10577990 (Version 1)
Quarter: 2014Q4

REPORT INFORMATION
  Report Type: Spontaneous
  Country: US (occurrence: US)
  Receive Date: 20141112
  Receipt Date: 20141112
  Transmission Date: 20150529
  Serious: Yes (Other)
  Sender: FDA-Public Use
  Company Number: US-CIPLA LTD.-2014US01659

PATIENT
  Age: 54 Year
  Sex: Female

DRUGS (7)
  1. GABAPENTIN. [Concomitant]
     Active Substance: GABAPENTIN
     Indication: SLEEP DISORDER
  2. BUTALBITAL [Concomitant]
     Active Substance: BUTALBITAL
     Indication: ANALGESIC THERAPY
  3. LISINOPRIL. [Concomitant]
     Active Substance: LISINOPRIL
     Indication: SLEEP DISORDER
  4. TOPIRAMATE. [Suspect]
     Active Substance: TOPIRAMATE
     Dosage: 25 MG DAILY
  5. TOPIRAMATE. [Suspect]
     Active Substance: TOPIRAMATE
     Dosage: 125 MG DAILY
  6. PROPRANOLOL [Concomitant]
     Active Substance: PROPRANOLOL\PROPRANOLOL HYDROCHLORIDE
     Indication: HEADACHE
     Dosage: 160 MG TWICE DAILY
  7. SUMATRIPTAN SUCCINATE. [Suspect]
     Active Substance: SUMATRIPTAN SUCCINATE

REACTIONS (1)
  - Burning mouth syndrome [Recovered/Resolved]
